FAERS Safety Report 6091232-8 (Version None)
Quarter: 2009Q1

REPORT INFORMATION
  Report Type: 
  Country: None (occurrence: None)
  Receive Date: 20090223
  Receipt Date: 20090210
  Transmission Date: 20090719
  Serious: Yes (Hospitalization, Other)
  Sender: FDA-Public Use
  Company Number: 2009AL000870

PATIENT
  Age: 5 Week
  Sex: Male

DRUGS (1)
  1. PHENOBARBITAL TAB [Suspect]
     Indication: STATUS EPILEPTICUS
     Dosage: 80 MG; XI1; IV
     Route: 042
     Dates: start: 20090113, end: 20090113

REACTIONS (5)
  - AREFLEXIA [None]
  - INCORRECT ROUTE OF DRUG ADMINISTRATION [None]
  - INFUSION SITE ERYTHEMA [None]
  - MEDICATION ERROR [None]
  - SOMNOLENCE [None]
